FAERS Safety Report 15959161 (Version 1)
Quarter: 2019Q1

REPORT INFORMATION
  Report Type: Report from Study
  Country: None (occurrence: BR)
  Receive Date: 20190214
  Receipt Date: 20190214
  Transmission Date: 20190417
  Serious: Yes (Other)
  Sender: FDA-Public Use
  Company Number: BR-ABBVIE-19K-020-2662446-00

PATIENT
  Age: 67 Year
  Sex: Female

DRUGS (1)
  1. HUMIRA [Suspect]
     Active Substance: ADALIMUMAB
     Indication: RHEUMATOID ARTHRITIS
     Route: 058
     Dates: start: 20181018

REACTIONS (8)
  - Anxiety [Unknown]
  - Lymphadenopathy [Unknown]
  - Infection [Unknown]
  - Lymphoma [Unknown]
  - Fear [Unknown]
  - Tuberculosis [Unknown]
  - Abnormal loss of weight [Unknown]
  - Autoimmune disorder [Unknown]

NARRATIVE: CASE EVENT DATE: 20181202
